FAERS Safety Report 11595369 (Version 6)
Quarter: 2016Q1

REPORT INFORMATION
  Report Type: Report from Study
  Country: DE (occurrence: DE)
  Receive Date: 20151006
  Receipt Date: 20160113
  Transmission Date: 20160525
  Serious: Yes (Hospitalization)
  Sender: FDA-Public Use
  Company Number: DE-ROCHE-1641083

PATIENT
  Age: 79 Year
  Sex: Male
  Weight: 72 kg

DRUGS (33)
  1. FOLINIC ACID [Suspect]
     Active Substance: LEUCOVORIN
     Dosage: DATE OF LAST DOSE PRIOR TO SAE 16/SEP/2015
     Route: 042
     Dates: start: 20150708, end: 20150819
  2. VERAPAMIL [Concomitant]
     Active Substance: VERAPAMIL HYDROCHLORIDE
     Indication: HYPERTENSION
     Route: 065
     Dates: start: 2011
  3. TAMSULOSIN [Concomitant]
     Active Substance: TAMSULOSIN
     Indication: BENIGN PROSTATIC HYPERPLASIA
     Route: 048
     Dates: start: 2011
  4. FLUOROURACIL. [Suspect]
     Active Substance: FLUOROURACIL
     Indication: COLORECTAL CANCER METASTATIC
     Dosage: DATE OF LAST DOSE PRIOR TO SAE 16/SEP/2015?400 MG/M2
     Route: 040
     Dates: start: 20140128, end: 20140325
  5. FLUOROURACIL. [Suspect]
     Active Substance: FLUOROURACIL
     Dosage: DATE OF LAST DOSE PRIOR TO SAE 16/SEP/2015
     Route: 040
     Dates: start: 20140812, end: 20140909
  6. LOPEDIUM [Concomitant]
     Active Substance: LOPERAMIDE
     Indication: DIARRHOEA
     Route: 048
     Dates: start: 20150318
  7. FOLINIC ACID [Suspect]
     Active Substance: LEUCOVORIN
     Dosage: DATE OF LAST DOSE PRIOR TO SAE 16/SEP/2015
     Route: 042
     Dates: start: 20140923, end: 20150126
  8. FOLINIC ACID [Suspect]
     Active Substance: LEUCOVORIN
     Dosage: DATE OF LAST DOSE PRIOR TO SAE 16/SEP/2015
     Route: 042
     Dates: start: 20150218, end: 20150624
  9. FOLINIC ACID [Suspect]
     Active Substance: LEUCOVORIN
     Dosage: DATE OF LAST DOSE PRIOR TO SAE 16/SEP/2015
     Route: 042
     Dates: start: 20150902, end: 20150916
  10. FLUOROURACIL. [Suspect]
     Active Substance: FLUOROURACIL
     Dosage: 2400 MG/M2
     Route: 042
     Dates: start: 20140128, end: 20140327
  11. IRINOTECAN [Concomitant]
     Active Substance: IRINOTECAN
     Route: 042
     Dates: start: 20150708, end: 20150805
  12. FLUOROURACIL. [Suspect]
     Active Substance: FLUOROURACIL
     Dosage: DATE OF LAST DOSE PRIOR TO SAE 16/SEP/2015
     Route: 040
     Dates: start: 20150218, end: 20150624
  13. FLUOROURACIL. [Suspect]
     Active Substance: FLUOROURACIL
     Dosage: DATE OF LAST DOSE PRIOR TO SAE 16/SEP/2015
     Route: 040
     Dates: start: 20150902
  14. FLUOROURACIL. [Suspect]
     Active Substance: FLUOROURACIL
     Route: 042
     Dates: start: 20150218, end: 20150626
  15. FLUOROURACIL. [Suspect]
     Active Substance: FLUOROURACIL
     Route: 042
     Dates: start: 20150708, end: 20150821
  16. MCP [Concomitant]
     Active Substance: METOCLOPRAMIDE HYDROCHLORIDE
     Route: 065
     Dates: start: 20140128
  17. BEVACIZUMAB [Suspect]
     Active Substance: BEVACIZUMAB
     Indication: COLORECTAL CANCER METASTATIC
     Dosage: TOTAL DOSE 415 MG
     Route: 042
     Dates: start: 20140128
  18. FLUOROURACIL. [Suspect]
     Active Substance: FLUOROURACIL
     Dosage: DATE OF LAST DOSE PRIOR TO SAE 16/SEP/2015
     Route: 040
     Dates: start: 20140407, end: 20140729
  19. FLUOROURACIL. [Suspect]
     Active Substance: FLUOROURACIL
     Dosage: DATE OF LAST DOSE PRIOR TO SAE 16/SEP/2015
     Route: 040
     Dates: start: 20140923, end: 20150126
  20. FLUOROURACIL. [Suspect]
     Active Substance: FLUOROURACIL
     Route: 042
     Dates: start: 20140923, end: 20150128
  21. FLUOROURACIL. [Suspect]
     Active Substance: FLUOROURACIL
     Dosage: DATE OF LAST DOSE PRIOR TO SAE: 16/SEP/2015
     Route: 042
     Dates: start: 20150902
  22. FOLINIC ACID [Suspect]
     Active Substance: LEUCOVORIN
     Dosage: DATE OF LAST DOSE PRIOR TO SAE 16/SEP/2015
     Route: 042
     Dates: start: 20140812, end: 20140909
  23. BEVACIZUMAB [Suspect]
     Active Substance: BEVACIZUMAB
     Dosage: DATE OF LAST DOSE PRIOR TO SAE: 16/SEP/2015?PERMANENTLY DISCONTINUED
     Route: 042
     Dates: start: 20150916, end: 20150916
  24. FLUOROURACIL. [Suspect]
     Active Substance: FLUOROURACIL
     Dosage: DATE OF LAST DOSE PRIOR TO SAE 16/SEP/2015
     Route: 040
     Dates: start: 20150708, end: 20150819
  25. FLUOROURACIL. [Suspect]
     Active Substance: FLUOROURACIL
     Route: 042
     Dates: start: 20140812, end: 20140911
  26. AMOXICILLIN. [Concomitant]
     Active Substance: AMOXICILLIN
     Indication: DEVICE RELATED INFECTION
     Route: 048
     Dates: start: 20141107, end: 20141113
  27. FLUOROURACIL. [Suspect]
     Active Substance: FLUOROURACIL
     Route: 042
     Dates: start: 20140407, end: 20140731
  28. FOLINIC ACID [Suspect]
     Active Substance: LEUCOVORIN
     Indication: COLORECTAL CANCER METASTATIC
     Dosage: DATE OF LAST DOSE PRIOR TO SAE 16/SEP/2015
     Route: 042
     Dates: start: 20140128, end: 20140325
  29. FOLINIC ACID [Suspect]
     Active Substance: LEUCOVORIN
     Dosage: DATE OF LAST DOSE PRIOR TO SAE 16/SEP/2015
     Route: 042
     Dates: start: 20140407, end: 20140729
  30. ASPIRIN. [Concomitant]
     Active Substance: ASPIRIN
     Route: 048
     Dates: start: 2007
  31. DEXAMETHAZONE [Concomitant]
     Active Substance: DEXAMETHASONE
     Route: 065
     Dates: start: 20150218
  32. TORASEMIDE [Concomitant]
     Active Substance: TORSEMIDE
     Indication: HYPERTENSION
     Route: 048
     Dates: start: 2011
  33. IRINOTECAN [Concomitant]
     Active Substance: IRINOTECAN
     Indication: COLORECTAL CANCER
     Route: 042
     Dates: start: 20150218, end: 20150624

REACTIONS (2)
  - Retinal detachment [Recovered/Resolved]
  - Blindness [Recovered/Resolved]

NARRATIVE: CASE EVENT DATE: 20150921
